FAERS Safety Report 5773021-4 (Version None)
Quarter: 2008Q2

REPORT INFORMATION
  Report Type: 
  Country: None (occurrence: None)
  Receive Date: 20080611
  Receipt Date: 20080530
  Transmission Date: 20081010
  Serious: Yes (Death, Other)
  Sender: FDA-Public Use
  Company Number: 2008BI014292

PATIENT
  Sex: Male
  Weight: 1.134 kg

DRUGS (1)
  1. AVONEX [Suspect]
     Indication: MULTIPLE SCLEROSIS
     Dosage: 30 UG; QW; TRPL
     Route: 064
     Dates: start: 20030101, end: 20030301

REACTIONS (4)
  - GASTROINTESTINAL INFECTION [None]
  - MATERNAL DRUGS AFFECTING FOETUS [None]
  - NEONATAL INFECTION [None]
  - PREMATURE BABY [None]
